FAERS Safety Report 13423824 (Version 1)
Quarter: 2017Q2

REPORT INFORMATION
  Report Type: Spontaneous
  Country: CN (occurrence: CN)
  Receive Date: 20170410
  Receipt Date: 20170410
  Transmission Date: 20170830
  Serious: Yes (Life-Threatening)
  Sender: FDA-Public Use
  Company Number: CN-PFIZER INC-2017152686

PATIENT
  Age: 36 Year
  Sex: Female
  Weight: 50 kg

DRUGS (4)
  1. PROPOFOL. [Concomitant]
     Active Substance: PROPOFOL
     Indication: ANAESTHESIA
     Dosage: 4 MG/KG, 1X/DAY
     Dates: start: 20170220, end: 20170220
  2. SOLU-MEDROL [Suspect]
     Active Substance: METHYLPREDNISOLONE SODIUM SUCCINATE
     Indication: SPINAL CORD INJURY
     Dosage: 1000 MG, 1X/DAY
     Route: 041
     Dates: start: 20170220, end: 20170220
  3. XIBAOFUNING [Concomitant]
     Indication: ANAESTHESIA
     Dosage: 2 %, 1X/DAY
     Route: 055
     Dates: start: 20170220, end: 20170220
  4. REMIFENTANIL HYDROCHLORIDE [Concomitant]
     Active Substance: REMIFENTANIL HYDROCHLORIDE
     Indication: ANAESTHESIA
     Dosage: 0.02 MG/KG, 1X/DAY
     Dates: start: 20170220, end: 20170220

REACTIONS (1)
  - Hypotension [Recovered/Resolved]

NARRATIVE: CASE EVENT DATE: 20170220
